FAERS Safety Report 12644881 (Version 1)
Quarter: 2016Q3

REPORT INFORMATION
  Report Type: Spontaneous
  Country: US (occurrence: US)
  Receive Date: 20160811
  Receipt Date: 20160811
  Transmission Date: 20161109
  Serious: No
  Sender: FDA-Public Use
  Company Number: US-ELI_LILLY_AND_COMPANY-US201608002010

PATIENT
  Age: 71 Year
  Sex: Female

DRUGS (1)
  1. TRULICITY [Suspect]
     Active Substance: DULAGLUTIDE
     Indication: TYPE 2 DIABETES MELLITUS
     Dosage: 1.5 MG, UNK
     Route: 065
     Dates: start: 20160601

REACTIONS (4)
  - Decreased appetite [Recovered/Resolved]
  - Drug dispensing error [Unknown]
  - Weight decreased [Not Recovered/Not Resolved]
  - Increased appetite [Unknown]

NARRATIVE: CASE EVENT DATE: 20160601
